FAERS Safety Report 10169041 (Version 2)
Quarter: 2014Q3

REPORT INFORMATION
  Report Type: Report from Study
  Country: CA (occurrence: CA)
  Receive Date: 20140513
  Receipt Date: 20140819
  Transmission Date: 20150326
  Serious: Yes (Other)
  Sender: FDA-Public Use
  Company Number: PHHY2014CA057193

PATIENT
  Age: 61 Year
  Sex: Female

DRUGS (1)
  1. SANDOSTATIN LAR DEPOT [Suspect]
     Active Substance: OCTREOTIDE ACETATE
     Indication: ACROMEGALY
     Dosage: 20 MG, EVERY 4 WEEKS
     Route: 030
     Dates: start: 20060911

REACTIONS (2)
  - Pulmonary embolism [Unknown]
  - Thrombosis [Unknown]

NARRATIVE: CASE EVENT DATE: 201401
